FAERS Safety Report 14442244 (Version 1)
Quarter: 2018Q1

REPORT INFORMATION
  Report Type: Report from Study
  Country: SG (occurrence: SG)
  Receive Date: 20180125
  Receipt Date: 20180125
  Transmission Date: 20180509
  Serious: Yes (Other)
  Sender: FDA-Public Use
  Company Number: SG-TEVA-2018-SG-849787

PATIENT
  Age: 32 Year
  Sex: Male

DRUGS (2)
  1. PREDNISOLONE. [Suspect]
     Active Substance: PREDNISOLONE
     Indication: STEROID THERAPY
     Dosage: 80 MG DAILY FOR 2 DAYS, THEN TAPERED OVER THE SUBSEQUENT DAYS
     Route: 048
  2. METHYLPREDNISOLONE. [Suspect]
     Active Substance: METHYLPREDNISOLONE
     Indication: STEROID THERAPY
     Dosage: 1 GRAM DAILY;
     Route: 042

REACTIONS (4)
  - Necrotising retinitis [Unknown]
  - Condition aggravated [Unknown]
  - Blindness [Unknown]
  - Herpes simplex [Unknown]
